FAERS Safety Report 14214854 (Version 1)
Quarter: 2017Q4

REPORT INFORMATION
  Report Type: Spontaneous
  Country: US (occurrence: US)
  Receive Date: 20171122
  Receipt Date: 20171122
  Transmission Date: 20180321
  Serious: No
  Sender: FDA-Public Use
  Company Number: US-JNJFOC-20171015313

PATIENT
  Sex: Female
  Weight: 63.05 kg

DRUGS (2)
  1. WOMENS ROGAINE UNSCENTED [Concomitant]
     Active Substance: MINOXIDIL
     Indication: HAIR GROWTH ABNORMAL
     Dosage: HALF CAPFUL
     Route: 061
     Dates: start: 20171006
  2. NIZORAL [Suspect]
     Active Substance: KETOCONAZOLE
     Indication: PRODUCT USED FOR UNKNOWN INDICATION
     Route: 061

REACTIONS (1)
  - Hair disorder [Unknown]

NARRATIVE: CASE EVENT DATE: 20171006
